FAERS Safety Report 15547345 (Version 2)
Quarter: 2023Q2

REPORT INFORMATION
  Report Type: Spontaneous
  Country: US (occurrence: US)
  Receive Date: 20181024
  Receipt Date: 20230613
  Transmission Date: 20230722
  Serious: Yes (Hospitalization)
  Sender: FDA-Public Use
  Company Number: US-TEVA-2018-US-966568

PATIENT
  Age: 16 Year
  Sex: Male

DRUGS (1)
  1. IBUPROFEN [Suspect]
     Active Substance: IBUPROFEN
     Indication: Humerus fracture
     Route: 065

REACTIONS (6)
  - Duodenal ulcer perforation [Recovered/Resolved]
  - Leukocytosis [Unknown]
  - Peritonitis [Unknown]
  - Colitis [Unknown]
  - Appendicitis [Unknown]
  - Chemical peritonitis [Unknown]
